FAERS Safety Report 13334412 (Version 4)
Quarter: 2017Q3

REPORT INFORMATION
  Report Type: Spontaneous
  Country: US (occurrence: US)
  Receive Date: 20170314
  Receipt Date: 20170706
  Transmission Date: 20171127
  Serious: Yes (Death, Hospitalization)
  Sender: FDA-Public Use
  Company Number: US-ASTELLAS-2017US006587

PATIENT
  Age: 90 Year
  Sex: Male

DRUGS (1)
  1. XTANDI [Suspect]
     Active Substance: ENZALUTAMIDE
     Indication: PROSTATE CANCER
     Route: 048
     Dates: start: 20170213, end: 20170701

REACTIONS (9)
  - Dysgeusia [Unknown]
  - Headache [Recovered/Resolved]
  - Death [Fatal]
  - Neck pain [Recovered/Resolved]
  - Thrombosis [Unknown]
  - Product physical issue [Unknown]
  - Kidney infection [Unknown]
  - Throat irritation [Unknown]
  - Musculoskeletal stiffness [Recovered/Resolved]

NARRATIVE: CASE EVENT DATE: 20170214
